FAERS Safety Report 9893451 (Version 1)
Quarter: 2014Q1

REPORT INFORMATION
  Report Type: Spontaneous
  Country: FR (occurrence: FR)
  Receive Date: 20140213
  Receipt Date: 20140213
  Transmission Date: 20141002
  Serious: Yes (Hospitalization)
  Sender: FDA-Public Use
  Company Number: FR-SA-2014SA014227

PATIENT
  Age: 87 Year
  Sex: Male

DRUGS (8)
  1. KARDEGIC [Suspect]
     Indication: PRODUCT USED FOR UNKNOWN INDICATION
     Route: 048
     Dates: end: 20130830
  2. PAROXETINE [Suspect]
     Indication: PRODUCT USED FOR UNKNOWN INDICATION
     Route: 048
  3. LOVENOX [Suspect]
     Indication: PRODUCT USED FOR UNKNOWN INDICATION
     Route: 058
     Dates: end: 20130830
  4. LASILIX FAIBLE [Concomitant]
     Route: 048
     Dates: end: 20130830
  5. CORDARONE [Concomitant]
     Dosage: 0.7143 DF (1 DF, 5 IN 7 DAY(S))?COMPRIME SECABLE
     Route: 048
  6. DIFFU K [Concomitant]
     Route: 048
  7. EUPANTOL [Concomitant]
     Route: 048
  8. EXELON [Concomitant]
     Route: 062

REACTIONS (3)
  - Fall [Recovered/Resolved]
  - Anaemia [Recovered/Resolved]
  - Haematoma [Recovered/Resolved]
